FAERS Safety Report 16663326 (Version 1)
Quarter: 2019Q3

REPORT INFORMATION
  Report Type: Report from Study
  Country: US (occurrence: US)
  Receive Date: 20190802
  Receipt Date: 20190802
  Transmission Date: 20191004
  Serious: No
  Sender: FDA-Public Use
  Company Number: US-EXELIXIS-CABO-19020876

PATIENT
  Sex: Female

DRUGS (1)
  1. CABOMETYX [Suspect]
     Active Substance: CABOZANTINIB S-MALATE
     Indication: GASTROINTESTINAL CARCINOMA
     Dosage: 60 MG, QD
     Dates: start: 20180707

REACTIONS (2)
  - Toxicity to various agents [Unknown]
  - Off label use [Unknown]
